FAERS Safety Report 12210900 (Version 3)
Quarter: 2017Q2

REPORT INFORMATION
  Report Type: Report from Study
  Country: US (occurrence: US)
  Receive Date: 20160325
  Receipt Date: 20170427
  Transmission Date: 20170830
  Serious: Yes (Hospitalization)
  Sender: FDA-Public Use
  Company Number: US-ACTELION-A-NJ2016-133211

PATIENT
  Age: 51 Year
  Sex: Female

DRUGS (12)
  1. RISPERDAL [Concomitant]
     Active Substance: RISPERIDONE
  2. TRAMADOL. [Concomitant]
     Active Substance: TRAMADOL
  3. ATORVASTATIN [Concomitant]
     Active Substance: ATORVASTATIN
  4. FUROSEMIDE. [Concomitant]
     Active Substance: FUROSEMIDE
  5. SINGULAIR [Concomitant]
     Active Substance: MONTELUKAST SODIUM
  6. PRAVASTATIN. [Concomitant]
     Active Substance: PRAVASTATIN
  7. KLOR-CON [Concomitant]
     Active Substance: POTASSIUM CHLORIDE
  8. PREDNISONE. [Concomitant]
     Active Substance: PREDNISONE
  9. ADCIRCA [Concomitant]
     Active Substance: TADALAFIL
  10. CARVEDILOL. [Concomitant]
     Active Substance: CARVEDILOL
  11. OPSUMIT [Suspect]
     Active Substance: MACITENTAN
     Indication: PULMONARY ARTERIAL HYPERTENSION
     Dosage: 10 MG, QD
     Route: 048
     Dates: start: 20160210
  12. BENZONATATE. [Concomitant]
     Active Substance: BENZONATATE

REACTIONS (4)
  - Chronic obstructive pulmonary disease [Not Recovered/Not Resolved]
  - Cardiac failure congestive [Unknown]
  - Pulmonary oedema [Unknown]
  - Pneumonia [Not Recovered/Not Resolved]
